FAERS Safety Report 7091416-6 (Version None)
Quarter: 2010Q4

REPORT INFORMATION
  Report Type: 
  Country: None (occurrence: None)
  Receive Date: 20101109
  Receipt Date: 20101104
  Transmission Date: 20110411
  Serious: Yes (Hospitalization)
  Sender: FDA-Public Use
  Company Number: B0682751A

PATIENT
  Sex: Male

DRUGS (6)
  1. DEROXAT [Suspect]
     Dosage: 20MG PER DAY
     Route: 048
     Dates: start: 20070425
  2. ZYPREXA [Suspect]
     Dosage: 10MG PER DAY
     Route: 048
     Dates: start: 20070425
  3. SULFARLEM [Suspect]
     Dosage: 2UNIT THREE TIMES PER DAY
     Route: 048
     Dates: start: 20070425
  4. LEPTICUR [Suspect]
     Dosage: 10MG PER DAY
     Route: 048
     Dates: start: 20070425
  5. IMOVANE [Suspect]
     Dosage: 7.5MG PER DAY
     Route: 048
     Dates: start: 20070425
  6. ALPRAZOLAM [Concomitant]
     Dosage: .5MG THREE TIMES PER DAY
     Route: 065
     Dates: start: 20070425

REACTIONS (7)
  - C-REACTIVE PROTEIN INCREASED [None]
  - CHEST PAIN [None]
  - FIBRIN D DIMER INCREASED [None]
  - HYPOVENTILATION [None]
  - PLEURAL EFFUSION [None]
  - PULMONARY EMBOLISM [None]
  - PULMONARY INFARCTION [None]
